FAERS Safety Report 9926090 (Version 7)
Quarter: 2014Q2

REPORT INFORMATION
  Report Type: Spontaneous
  Country: US (occurrence: US)
  Receive Date: 20140226
  Receipt Date: 20140619
  Transmission Date: 20141212
  Serious: Yes (Hospitalization, Disabling, Other)
  Sender: FDA-Public Use
  Company Number: US-009507513-1109USA00246

PATIENT
  Sex: Female
  Weight: 67.4 kg

DRUGS (5)
  1. FOSAMAX [Suspect]
     Indication: OSTEOPOROSIS
     Dosage: 70 MG, QW
     Route: 048
     Dates: start: 20010517, end: 200907
  2. FOSAMAX [Suspect]
     Dosage: 10 MG, QD
     Route: 048
     Dates: end: 20010517
  3. ALENDRONATE SODIUM [Suspect]
     Dosage: 70 MG, UNK
  4. CALCIUM (UNSPECIFIED) [Concomitant]
     Dosage: 500-1000 MG QD
     Route: 048
     Dates: start: 1990
  5. BAYCOL [Concomitant]
     Dosage: 0.4 MG, QD
     Dates: end: 2001

REACTIONS (35)
  - Femoral neck fracture [Recovering/Resolving]
  - Open reduction of fracture [Unknown]
  - Femoral neck fracture [Recovering/Resolving]
  - Osteoporosis [Not Recovered/Not Resolved]
  - Low turnover osteopathy [Not Recovered/Not Resolved]
  - Hip arthroplasty [Unknown]
  - Intramedullary rod insertion [Unknown]
  - Myasthenia gravis [Unknown]
  - Hip arthroplasty [Unknown]
  - Removal of internal fixation [Unknown]
  - Haemorrhagic anaemia [Recovering/Resolving]
  - Femur fracture [Recovered/Resolved]
  - Femur fracture [Recovering/Resolving]
  - Femur fracture [Recovering/Resolving]
  - Osteopenia [Unknown]
  - Anaemia postoperative [Unknown]
  - Haematuria [Not Recovered/Not Resolved]
  - Occult blood positive [Unknown]
  - Urine leukocyte esterase positive [Unknown]
  - Chest pain [Unknown]
  - Hypercholesterolaemia [Unknown]
  - Large intestine polyp [Unknown]
  - Urinary tract infection [Unknown]
  - Anaemia [Unknown]
  - Syncope [Unknown]
  - Cardiac septal hypertrophy [Unknown]
  - Hyperdynamic left ventricle [Unknown]
  - Aortic valve sclerosis [Unknown]
  - Aortic valve incompetence [Unknown]
  - Pulmonary hypertension [Unknown]
  - Vision blurred [Not Recovered/Not Resolved]
  - Pupillary reflex impaired [Unknown]
  - Haemoglobin decreased [Unknown]
  - Haematocrit decreased [Unknown]
  - Treatment failure [Unknown]
